FAERS Safety Report 7120231-X (Version None)
Quarter: 2010Q4

REPORT INFORMATION
  Report Type: 
  Country: None (occurrence: None)
  Receive Date: 20101123
  Receipt Date: 20101108
  Transmission Date: 20110411
  Serious: Yes (Other)
  Sender: FDA-Public Use
  Company Number: US-AMGEN-USASP2010004358

PATIENT

DRUGS (4)
  1. ARANESP [Suspect]
     Indication: ANAEMIA
     Dates: start: 20100921
  2. COUMADIN [Concomitant]
  3. MULTIVITAMIN                       /00097801/ [Concomitant]
  4. VITAMIN K TAB [Concomitant]

REACTIONS (1)
  - PROTHROMBIN TIME SHORTENED [None]
